FAERS Safety Report 4424331-4 (Version None)
Quarter: 2004Q3

REPORT INFORMATION
  Report Type: 
  Country: None (occurrence: None)
  Receive Date: 20040806
  Receipt Date: 20040806
  Transmission Date: 20050211
  Serious: Yes (Life-Threatening)
  Sender: FDA-Public Use
  Company Number: None

PATIENT
  Age: 76 Year
  Sex: Female
  Weight: 60.3284 kg

DRUGS (2)
  1. LEVAQUIN [Suspect]
     Indication: PNEUMONIA
     Dosage: 500 MG Q 24 HR IV
     Route: 042
     Dates: start: 20040604, end: 20040605
  2. SOTALOL HCL [Suspect]
     Indication: ARRHYTHMIA
     Dosage: 80 MG BID ORAL
     Route: 048
     Dates: start: 20040301, end: 20040605

REACTIONS (1)
  - TORSADE DE POINTES [None]
